FAERS Safety Report 22539897 (Version 1)
Quarter: 2023Q2

REPORT INFORMATION
  Report Type: Spontaneous
  Country: US (occurrence: None)
  Receive Date: 20230607
  Receipt Date: 20230607
  Transmission Date: 20230722
  Serious: Yes (Hospitalization)
  Sender: FDA-Public Use
  Company Number: None

PATIENT
  Sex: Female

DRUGS (7)
  1. RINVOQ [Suspect]
     Active Substance: UPADACITINIB
     Indication: Rheumatoid arthritis
     Dosage: FREQUENCY : DAILY;?
     Route: 048
     Dates: start: 20230330
  2. RINVOQ [Suspect]
     Active Substance: UPADACITINIB
     Dosage: FREQUENCY : DAILY;?
     Route: 048
  3. CYCLOBENZAPRINE [Concomitant]
     Active Substance: CYCLOBENZAPRINE
  4. KLONOPIN [Concomitant]
  5. MS CONTIN [Concomitant]
  6. NEURONTIN [Concomitant]
  7. SYNTHROID [Concomitant]

REACTIONS (4)
  - Therapeutic product ineffective [None]
  - Loss of personal independence in daily activities [None]
  - Therapy interrupted [None]
  - Illness [None]
